FAERS Safety Report 5214214-4 (Version None)
Quarter: 2007Q1

REPORT INFORMATION
  Report Type: 
  Country: None (occurrence: None)
  Receive Date: 20070122
  Receipt Date: 20070112
  Transmission Date: 20070707
  Serious: Yes (Hospitalization)
  Sender: FDA-Public Use
  Company Number: US-JNJFOC-20070104687

PATIENT
  Age: 28 Year
  Sex: Female

DRUGS (2)
  1. TRAMADOL HYDROCHLORIDE AND ACETAMINOPHEN [Suspect]
     Indication: DRUG USE FOR UNKNOWN INDICATION
     Dosage: 2-3 DOSES
     Route: 048
  2. APAP IN COMBINATION WITH OTHER DRUG [Suspect]
     Indication: DRUG USE FOR UNKNOWN INDICATION
     Dosage: 2-3 DOSES
     Route: 048

REACTIONS (7)
  - ALANINE AMINOTRANSFERASE INCREASED [None]
  - ASPARTATE AMINOTRANSFERASE INCREASED [None]
  - DRUG SCREEN POSITIVE [None]
  - DRUG WITHDRAWAL SYNDROME [None]
  - INTENTIONAL DRUG MISUSE [None]
  - MENTAL DISORDER [None]
  - SOMNOLENCE [None]
